FAERS Safety Report 9355356 (Version 1)
Quarter: 2013Q2

REPORT INFORMATION
  Report Type: Report from Study
  Country: GB (occurrence: GB)
  Receive Date: 20130619
  Receipt Date: 20130619
  Transmission Date: 20140414
  Serious: Yes (Hospitalization, Other)
  Sender: FDA-Public Use
  Company Number: GB-JNJFOC-20130607770

PATIENT
  Age: 69 Year
  Sex: Female

DRUGS (7)
  1. REMICADE [Suspect]
     Indication: RHEUMATOID ARTHRITIS
     Route: 042
     Dates: start: 20080312, end: 2012
  2. AMLODIPINE [Concomitant]
     Route: 048
  3. CALCICHEW [Concomitant]
     Route: 048
  4. DERMOL 500 [Concomitant]
     Route: 061
  5. LANSOPRAZOLE [Concomitant]
     Route: 048
  6. CLENIL MODULITE [Concomitant]
     Route: 065
  7. PREDNISOLONE [Concomitant]
     Route: 048

REACTIONS (4)
  - Progressive multifocal leukoencephalopathy [Unknown]
  - Human polyomavirus infection [Unknown]
  - Immune reconstitution inflammatory syndrome [Unknown]
  - Basal cell carcinoma [Unknown]
